FAERS Safety Report 6217732-5 (Version None)
Quarter: 2009Q2

REPORT INFORMATION
  Report Type: 
  Country: None (occurrence: None)
  Receive Date: 20090608
  Receipt Date: 20090527
  Transmission Date: 20091009
  Serious: Yes (Other)
  Sender: FDA-Public Use
  Company Number: US-BAYER-200919503NA

PATIENT
  Age: 75 Year
  Sex: Male

DRUGS (12)
  1. AVELOX [Suspect]
     Indication: BRONCHITIS
     Dosage: UNIT DOSE: 400 MG
     Dates: start: 20081229
  2. AMIODARONE HCL [Interacting]
     Indication: ATRIAL FLUTTER
     Dosage: TAPERED TO 50 MG/DAY BY DEC-2008
     Dates: start: 20080801
  3. DIGOXIN [Concomitant]
     Dosage: TOTAL DAILY DOSE: 0.25 MG
  4. ALDACTAZIDE [Concomitant]
     Dosage: TOTAL DAILY DOSE: 25 MG
  5. ATACAND [Concomitant]
     Dosage: TOTAL DAILY DOSE: 32 MG
  6. FLOMAX [Concomitant]
     Dosage: TOTAL DAILY DOSE: 0.4 MG
  7. CARDIZEM [Concomitant]
     Dosage: TOTAL DAILY DOSE: 360 MG
  8. PROSCAR [Concomitant]
     Dosage: TOTAL DAILY DOSE: 5 MG
  9. LIPITOR [Concomitant]
     Dosage: TOTAL DAILY DOSE: 10 MG
  10. COUMADIN [Concomitant]
     Dosage: TOTAL DAILY DOSE: 1 MG
  11. ADVAIR HFA [Concomitant]
     Dosage: 500/50 BID
  12. FOSAMAX [Concomitant]

REACTIONS (3)
  - ATRIOVENTRICULAR BLOCK FIRST DEGREE [None]
  - LOSS OF CONSCIOUSNESS [None]
  - URINARY INCONTINENCE [None]
